FAERS Safety Report 21662538 (Version 1)
Quarter: 2022Q4

REPORT INFORMATION
  Report Type: Spontaneous
  Country: US (occurrence: None)
  Receive Date: 20221130
  Receipt Date: 20221130
  Transmission Date: 20230112
  Serious: No
  Sender: FDA-Public Use
  Company Number: US-ALVOGEN-2022-ALVOGEN-120891

PATIENT
  Sex: Male
  Weight: 92.99 kg

DRUGS (1)
  1. LEVOTHYROXINE [Suspect]
     Active Substance: LEVOTHYROXINE
     Indication: Hyperthyroidism

REACTIONS (3)
  - Eczema [Recovered/Resolved]
  - Blood blister [Not Recovered/Not Resolved]
  - Erythema [Not Recovered/Not Resolved]
